FAERS Safety Report 16428855 (Version 3)
Quarter: 2019Q3

REPORT INFORMATION
  Report Type: Report from Study
  Country: BR (occurrence: BR)
  Receive Date: 20190613
  Receipt Date: 20190729
  Transmission Date: 20191004
  Serious: Yes (Other)
  Sender: FDA-Public Use
  Company Number: PHHY2019BR134531

PATIENT
  Age: 82 Year
  Sex: Female

DRUGS (1)
  1. EXELON PATCH [Suspect]
     Active Substance: RIVASTIGMINE
     Indication: DEMENTIA ALZHEIMER^S TYPE
     Dosage: 9.5 MG, QD (PATCH 10 CM2)
     Route: 062

REACTIONS (9)
  - Application site pain [Unknown]
  - Dermatitis contact [Not Recovered/Not Resolved]
  - Application site hypersensitivity [Unknown]
  - Shock [Recovered/Resolved]
  - Application site rash [Unknown]
  - Seizure [Recovered/Resolved]
  - Application site erythema [Not Recovered/Not Resolved]
  - Lack of application site rotation [Unknown]
  - Product adhesion issue [Not Recovered/Not Resolved]
